FAERS Safety Report 25540246 (Version 1)
Quarter: 2025Q3

REPORT INFORMATION
  Report Type: Spontaneous
  Country: CA (occurrence: CA)
  Receive Date: 20250710
  Receipt Date: 20250710
  Transmission Date: 20251020
  Serious: Yes (Hospitalization)
  Sender: PFIZER
  Company Number: CA-PFIZER INC-202500139195

PATIENT
  Age: 95 Year
  Sex: Male

DRUGS (6)
  1. CIBINQO [Suspect]
     Active Substance: ABROCITINIB
     Indication: Dermatitis atopic
     Dosage: 100 MG, 1X/DAY
     Route: 048
     Dates: start: 20230830, end: 2023
  2. CIBINQO [Suspect]
     Active Substance: ABROCITINIB
     Dosage: 50 MG, 1X/DAY
     Route: 048
     Dates: start: 2023
  3. CIBINQO [Suspect]
     Active Substance: ABROCITINIB
     Dosage: 50 MG, 2X/DAY
     Route: 048
  4. AMLODIPINE [Concomitant]
     Active Substance: AMLODIPINE BESYLATE
     Route: 065
  5. AVEENO [Concomitant]
     Active Substance: DIMETHICONE\HOMOSALATE\OCTINOXATE\OCTISALATE\TITANIUM DIOXIDE
     Route: 065
  6. ENSTILAR [Concomitant]
     Active Substance: BETAMETHASONE DIPROPIONATE\CALCIPOTRIENE HYDRATE
     Route: 065

REACTIONS (2)
  - Streptococcal sepsis [Unknown]
  - Off label use [Unknown]

NARRATIVE: CASE EVENT DATE: 20250701
